FAERS Safety Report 19653392 (Version 1)
Quarter: 2021Q3

REPORT INFORMATION
  Report Type: Spontaneous
  Country: GR (occurrence: GR)
  Receive Date: 20210803
  Receipt Date: 20210803
  Transmission Date: 20211014
  Serious: Yes (Life-Threatening, Other)
  Sender: FDA-Public Use
  Company Number: GR-FERRINGPH-2021FE04863

PATIENT
  Age: 20 Year
  Sex: Male

DRUGS (1)
  1. SOMATROPIN. [Suspect]
     Active Substance: SOMATROPIN
     Indication: PRODUCT USED FOR UNKNOWN INDICATION
     Route: 058
     Dates: start: 20040601, end: 20160725

REACTIONS (2)
  - Product use issue [Recovered/Resolved]
  - Testicular germ cell cancer [Recovered/Resolved]

NARRATIVE: CASE EVENT DATE: 20160830
